FAERS Safety Report 5610660-5 (Version None)
Quarter: 2008Q1

REPORT INFORMATION
  Report Type: 
  Country: None (occurrence: None)
  Receive Date: 20080128
  Receipt Date: 20080114
  Transmission Date: 20080703
  Serious: Yes (Death)
  Sender: FDA-Public Use
  Company Number: 023029

PATIENT
  Age: 36 Year
  Sex: Female

DRUGS (3)
  1. ATENOLOL AND CHLORTHALIDONE (A TENOLOL, CHLORTHALIDONE) TABLET, 50 +10 [Suspect]
     Dosage: ORAL
     Route: 048
  2. ENALAPRIL MALEATE [Suspect]
     Dosage: ORAL
     Route: 048
  3. RANITIDINE [Suspect]
     Dosage: ORAL
     Route: 048

REACTIONS (1)
  - COMPLETED SUICIDE [None]
